FAERS Safety Report 9544188 (Version 4)
Quarter: 2013Q3

REPORT INFORMATION
  Report Type: Report from Study
  Country: GB (occurrence: GB)
  Receive Date: 20130923
  Receipt Date: 20130930
  Transmission Date: 20140515
  Serious: Yes (Death, Hospitalization)
  Sender: FDA-Public Use
  Company Number: GB-ROCHE-1270970

PATIENT
  Age: 61 Year
  Sex: Male
  Weight: 98 kg

DRUGS (7)
  1. BEVACIZUMAB [Suspect]
     Indication: COLON CANCER
     Route: 042
     Dates: start: 20121121, end: 20130520
  2. BEVACIZUMAB [Suspect]
     Indication: RECTAL CANCER
  3. CYCLIZINE [Concomitant]
     Dosage: AS REQUIRED
     Route: 048
     Dates: start: 20130830
  4. CO-CODAMOL [Concomitant]
     Indication: PAIN
     Route: 065
     Dates: start: 20130830
  5. METOCLOPRAMIDE [Concomitant]
     Indication: NAUSEA
     Dosage: AS REQUIRED
     Route: 048
     Dates: start: 20130830
  6. SIMVASTATIN [Concomitant]
     Indication: BLOOD CHOLESTEROL INCREASED
     Route: 048
     Dates: start: 20130830
  7. CO-AMOXICLAV [Concomitant]
     Indication: PNEUMONIA
     Route: 048
     Dates: start: 20130830

REACTIONS (2)
  - Dyspnoea [Fatal]
  - Colon cancer metastatic [Fatal]
